FAERS Safety Report 7674927-1 (Version None)
Quarter: 2011Q3

REPORT INFORMATION
  Report Type: 
  Country: None (occurrence: None)
  Receive Date: 20110810
  Receipt Date: 20110728
  Transmission Date: 20111222
  Serious: Yes (Hospitalization, Other)
  Sender: FDA-Public Use
  Company Number: US-ELI_LILLY_AND_COMPANY-US201108001023

PATIENT
  Age: 25 Year
  Sex: Male

DRUGS (4)
  1. TRAZODONE HCL [Concomitant]
  2. CYMBALTA [Suspect]
     Dosage: 30 MG, QD
     Dates: end: 20110701
  3. CYMBALTA [Suspect]
     Indication: DEPRESSION
     Dosage: UNK UNK, UNKNOWN
  4. CYMBALTA [Suspect]
     Dosage: 60 MG, QD
     Dates: start: 20110701, end: 20110701

REACTIONS (2)
  - CONVULSION [None]
  - HYPERVENTILATION [None]
